FAERS Safety Report 20062650 (Version 3)
Quarter: 2021Q4

REPORT INFORMATION
  Report Type: Spontaneous
  Country: PL (occurrence: PL)
  Receive Date: 20211112
  Receipt Date: 20211223
  Transmission Date: 20220303
  Serious: Yes (Life-Threatening, Hospitalization)
  Sender: FDA-Public Use
  Company Number: PL-CELGENE-POL-20211103341

PATIENT
  Age: 61 Year
  Sex: Female
  Weight: 58 kg

DRUGS (9)
  1. AZACITIDINE [Suspect]
     Active Substance: AZACITIDINE
     Indication: Myelodysplastic syndrome
     Dosage: 75 MICROGRAM/SQ. METER
     Route: 058
     Dates: start: 20211018
  2. VENETOCLAX [Suspect]
     Active Substance: VENETOCLAX
     Indication: Acute myeloid leukaemia
     Route: 048
  3. METOPROLOL SUCCINATE [Concomitant]
     Active Substance: METOPROLOL SUCCINATE
     Indication: Supraventricular tachycardia
     Dosage: 50 MILLIGRAM
     Route: 048
     Dates: start: 20210109
  4. Kalipoz prolong [Concomitant]
     Indication: Prophylaxis
     Dosage: 1173 MILLIGRAM
     Route: 048
     Dates: start: 20210909
  5. Asmag forte [Concomitant]
     Indication: Prophylaxis
     Dosage: 1500 MILLIGRAM
     Route: 048
     Dates: start: 20210909
  6. OMEPRAZOLE SODIUM [Concomitant]
     Active Substance: OMEPRAZOLE SODIUM
     Indication: Hiatus hernia
     Dosage: 20 MILLIGRAM
     Route: 048
     Dates: start: 20210909
  7. ZIRID [Concomitant]
     Indication: Hiatus hernia
     Dosage: 100 MILLIGRAM
     Route: 048
     Dates: start: 20210909
  8. Calperos [Concomitant]
     Indication: Osteoporosis prophylaxis
     Dosage: 1 GRAM
     Route: 048
     Dates: start: 20211011
  9. CONTROLOC [Concomitant]
     Active Substance: PANTOPRAZOLE SODIUM
     Indication: Hiatus hernia
     Dosage: 20 MILLIGRAM
     Route: 048
     Dates: start: 20211011

REACTIONS (1)
  - COVID-19 pneumonia [Recovered/Resolved]

NARRATIVE: CASE EVENT DATE: 20211104
